FAERS Safety Report 16407388 (Version 1)
Quarter: 2019Q2

REPORT INFORMATION
  Report Type: Spontaneous
  Country: ES (occurrence: ES)
  Receive Date: 20190608
  Receipt Date: 20190608
  Transmission Date: 20190711
  Serious: Yes (Other)
  Sender: FDA-Public Use
  Company Number: ES-AMGEN-ESPSP2019079983

PATIENT
  Sex: Female

DRUGS (1)
  1. PROLIA [Suspect]
     Active Substance: DENOSUMAB
     Indication: PRODUCT USED FOR UNKNOWN INDICATION
     Dosage: UNK
     Route: 065
     Dates: start: 20190114

REACTIONS (7)
  - Ligament sprain [Unknown]
  - Pain [Unknown]
  - Muscle rupture [Unknown]
  - Unevaluable event [Unknown]
  - Toothache [Unknown]
  - Pain in jaw [Unknown]
  - Protein total abnormal [Unknown]

NARRATIVE: CASE EVENT DATE: 2019
